FAERS Safety Report 24765782 (Version 2)
Quarter: 2024Q4

REPORT INFORMATION
  Report Type: Spontaneous
  Country: US (occurrence: US)
  Receive Date: 20241223
  Receipt Date: 20241223
  Transmission Date: 20250114
  Serious: Yes (Hospitalization)
  Sender: AMGEN
  Company Number: US-AMGEN-USASP2024248623

PATIENT
  Age: 40 Year
  Sex: Female

DRUGS (20)
  1. PREDNISONE [Suspect]
     Active Substance: PREDNISONE
     Indication: Metabolic syndrome
     Dosage: 60 MILLIGRAM, QD
     Route: 065
  2. RITUXIMAB [Suspect]
     Active Substance: RITUXIMAB
     Indication: Metabolic syndrome
     Dosage: UNK (2 DOSES)
     Route: 065
  3. INSULIN GLARGINE [Concomitant]
     Active Substance: INSULIN GLARGINE
     Indication: Diabetes mellitus
     Dosage: 45 UNIT, QD
  4. INSULIN GLARGINE [Concomitant]
     Active Substance: INSULIN GLARGINE
     Indication: Hypoglycaemic seizure
     Dosage: 16 UNIT
  5. INSULIN LISPRO [Concomitant]
     Active Substance: INSULIN LISPRO
     Indication: Diabetes mellitus
     Dosage: 15 UNIT (PRE-MEALS)
     Route: 065
  6. INSULIN LISPRO [Concomitant]
     Active Substance: INSULIN LISPRO
     Indication: Hypoglycaemic seizure
     Dosage: 6 UNIT (WITH MEALS)
  7. METFORMIN [Concomitant]
     Active Substance: METFORMIN HYDROCHLORIDE
     Indication: Diabetes mellitus
  8. METFORMIN [Concomitant]
     Active Substance: METFORMIN HYDROCHLORIDE
     Indication: Metabolic syndrome
  9. INSULIN NOS [Concomitant]
     Active Substance: INSULIN NOS
     Indication: Diabetes mellitus
     Dosage: UNK (HIGH DOSES)
     Route: 065
  10. INSULIN NOS [Concomitant]
     Active Substance: INSULIN NOS
     Indication: Metabolic syndrome
     Dosage: 287 UNIT, QD (3.4UNITS/KG)
     Route: 065
  11. INSULIN NOS [Concomitant]
     Active Substance: INSULIN NOS
     Dosage: 500 UNIT, REGULAR
     Route: 065
  12. INSULIN NOS [Concomitant]
     Active Substance: INSULIN NOS
     Dosage: UNK (UP TO 1700 UNITS OF INSULIN PER HOUR)
     Route: 040
  13. INSULIN NOS [Concomitant]
     Active Substance: INSULIN NOS
     Dosage: 500 UNIT, REGULAR
  14. INSULIN NOS [Concomitant]
     Active Substance: INSULIN NOS
     Dosage: 1000 UNIT (WITH BREAKFAST)
  15. INSULIN NOS [Concomitant]
     Active Substance: INSULIN NOS
     Dosage: 500 UNIT (WITH LUNCH)
  16. PIOGLITAZONE [Concomitant]
     Active Substance: PIOGLITAZONE
     Indication: Metabolic syndrome
  17. METHYLPREDNISOLONE [Concomitant]
     Active Substance: METHYLPREDNISOLONE
     Indication: Metabolic syndrome
  18. CYCLOPHOSPHAMIDE [Concomitant]
     Active Substance: CYCLOPHOSPHAMIDE
     Indication: Metabolic syndrome
     Dosage: UNK (2 DOSES)
  19. HYDROXYCHLOROQUINE [Concomitant]
     Active Substance: HYDROXYCHLOROQUINE
     Indication: Metabolic syndrome
  20. HUMAN IMMUNOGLOBULIN G [Concomitant]
     Active Substance: HUMAN IMMUNOGLOBULIN G
     Indication: Metabolic syndrome
     Route: 040

REACTIONS (4)
  - Haemophagocytic lymphohistiocytosis [Unknown]
  - Hypoglycaemic seizure [Unknown]
  - Drug ineffective for unapproved indication [Unknown]
  - Off label use [Unknown]
